FAERS Safety Report 4283415-4 (Version None)
Quarter: 2004Q1

REPORT INFORMATION
  Report Type: 
  Country: None (occurrence: None)
  Receive Date: 20040129
  Receipt Date: 20040129
  Transmission Date: 20041129
  Serious: Yes (Hospitalization)
  Sender: FDA-Public Use
  Company Number: None

PATIENT
  Age: 40 Year
  Sex: Male
  Weight: 86.2 kg

DRUGS (9)
  1. ENALAPRIL [Suspect]
     Indication: HYPERTENSION
     Dosage: 5 MG PO BID
     Route: 048
     Dates: end: 20031009
  2. NEURONTIN [Concomitant]
  3. NYSTATIN [Concomitant]
  4. METOCLOPRAMIDE [Concomitant]
  5. FUROSEMIDE [Concomitant]
  6. HUMALOG [Concomitant]
  7. LANTUS [Concomitant]
  8. METHADONE HCL [Concomitant]
  9. ROXICET [Concomitant]

REACTIONS (5)
  - OEDEMA GENITAL [None]
  - OEDEMA PERIPHERAL [None]
  - SWELLING [None]
  - SWELLING FACE [None]
  - TONGUE OEDEMA [None]
